FAERS Safety Report 9971858 (Version 1)
Quarter: 2014Q1

REPORT INFORMATION
  Report Type: Report from Study
  Country: US (occurrence: US)
  Receive Date: 20140306
  Receipt Date: 20140306
  Transmission Date: 20141002
  Serious: No
  Sender: FDA-Public Use
  Company Number: US-ABBVIE-13P-163-1150074-00

PATIENT
  Age: 27 Year
  Sex: Female

DRUGS (5)
  1. HUMIRA [Suspect]
     Indication: COLITIS ULCERATIVE
  2. GNC WOMEN^S VITAMIN [Concomitant]
     Indication: PRODUCT USED FOR UNKNOWN INDICATION
     Dosage: DAILY
  3. LEE SWANSON ULTIMATE PROBIOTIC [Concomitant]
     Indication: PRODUCT USED FOR UNKNOWN INDICATION
  4. DR. STEVEN LANDERES 15 STRAIN PROBIOTIC [Concomitant]
     Indication: PRODUCT USED FOR UNKNOWN INDICATION
  5. TRINESSA [Concomitant]
     Indication: CONTRACEPTION

REACTIONS (2)
  - Injection site papule [Not Recovered/Not Resolved]
  - Injection site erythema [Not Recovered/Not Resolved]
